FAERS Safety Report 13362378 (Version 1)
Quarter: 2017Q1

REPORT INFORMATION
  Report Type: Spontaneous
  Country: US (occurrence: US)
  Receive Date: 20170323
  Receipt Date: 20170323
  Transmission Date: 20170429
  Serious: No
  Sender: FDA-Public Use
  Company Number: ALCN2017US002157

PATIENT
  Age: 47 Year
  Sex: Male

DRUGS (1)
  1. SYSTANE BALANCE [Suspect]
     Active Substance: PROPYLENE GLYCOL
     Indication: DRY EYE
     Dosage: 2 GTT, UNK
     Route: 047
     Dates: start: 2015

REACTIONS (1)
  - Expired product administered [Unknown]

NARRATIVE: CASE EVENT DATE: 20170315
